FAERS Safety Report 6869324-2 (Version None)
Quarter: 2010Q3

REPORT INFORMATION
  Report Type: 
  Country: None (occurrence: None)
  Receive Date: 20100722
  Receipt Date: 20080715
  Transmission Date: 20110219
  Serious: No
  Sender: FDA-Public Use
  Company Number: US-PFIZER INC-2008060250

PATIENT
  Age: 86 Year
  Sex: Male
  Weight: 82.54 kg

DRUGS (1)
  1. CHANTIX [Suspect]

REACTIONS (3)
  - DYSURIA [None]
  - MICTURITION DISORDER [None]
  - PROSTATOMEGALY [None]
